FAERS Safety Report 14374804 (Version 1)
Quarter: 2018Q1

REPORT INFORMATION
  Report Type: Spontaneous
  Country: US (occurrence: US)
  Receive Date: 20180111
  Receipt Date: 20180111
  Transmission Date: 20180509
  Serious: No
  Sender: FDA-Public Use
  Company Number: PHEH2017US040410

PATIENT
  Sex: Female
  Weight: 65.76 kg

DRUGS (1)
  1. POLY B SULFATE/TRIMETHOPRIM [Suspect]
     Active Substance: POLYMYXIN B SULFATE\TRIMETHOPRIM
     Indication: EYE INFECTION
     Dosage: 1 DRP, QID FOR 7 DAYS
     Route: 047
     Dates: start: 20171207

REACTIONS (2)
  - Eye pain [Unknown]
  - Ocular hyperaemia [Unknown]
